FAERS Safety Report 15020364 (Version 3)
Quarter: 2018Q3

REPORT INFORMATION
  Report Type: Spontaneous
  Country: US (occurrence: US)
  Receive Date: 20180618
  Receipt Date: 20180809
  Transmission Date: 20181010
  Serious: Yes (Hospitalization)
  Sender: FDA-Public Use
  Company Number: US-ALVOGEN-2018-ALVOGEN-096356

PATIENT
  Age: 24 Year
  Sex: Male

DRUGS (8)
  1. TRAZODONE [Suspect]
     Active Substance: TRAZODONE HYDROCHLORIDE
     Indication: INTENTIONAL OVERDOSE
  2. RISPERIDONE. [Suspect]
     Active Substance: RISPERIDONE
     Indication: INTENTIONAL OVERDOSE
  3. CYPROHEPTADINE. [Suspect]
     Active Substance: CYPROHEPTADINE
     Indication: INTENTIONAL OVERDOSE
  4. OLANZAPINE. [Suspect]
     Active Substance: OLANZAPINE
     Indication: INTENTIONAL OVERDOSE
  5. FLUOXETINE [Suspect]
     Active Substance: FLUOXETINE HYDROCHLORIDE
     Indication: INTENTIONAL OVERDOSE
  6. OLANZAPINE. [Suspect]
     Active Substance: OLANZAPINE
     Indication: INTENTIONAL OVERDOSE
  7. BUPROPION. [Suspect]
     Active Substance: BUPROPION
     Indication: INTENTIONAL OVERDOSE
  8. BUPROPION. [Suspect]
     Active Substance: BUPROPION
     Indication: INTENTIONAL OVERDOSE

REACTIONS (2)
  - Serotonin syndrome [Recovered/Resolved]
  - Intentional overdose [Unknown]
